FAERS Safety Report 6262592-X (Version None)
Quarter: 2009Q3

REPORT INFORMATION
  Report Type: 
  Country: None (occurrence: None)
  Receive Date: 20090709
  Receipt Date: 20090702
  Transmission Date: 20100115
  Serious: Yes (Death)
  Sender: FDA-Public Use
  Company Number: US-ELI_LILLY_AND_COMPANY-US200905003816

PATIENT
  Sex: Male

DRUGS (11)
  1. BYETTA [Suspect]
     Indication: TYPE 2 DIABETES MELLITUS
     Dosage: 10 UG, UNKNOWN
     Route: 058
     Dates: start: 20071108, end: 20080225
  2. BYETTA [Suspect]
     Dosage: 10 UG, 2/D
     Route: 058
     Dates: start: 20080225
  3. AMARYL [Concomitant]
     Dosage: 4 MG, DAILY (1/D)
     Route: 048
  4. LIPITOR [Concomitant]
     Dosage: 80 MG, DAILY (1/D)
     Route: 048
  5. ASPIRIN [Concomitant]
     Dosage: 81 MG, DAILY (1/D)
     Route: 048
  6. COUMADIN [Concomitant]
     Dosage: 6 MG, UNK
  7. DIOVAN [Concomitant]
     Dosage: 40 MG, DAILY (1/D)
     Route: 048
  8. LASIX [Concomitant]
     Dosage: 40 MG, DAILY (1/D)
     Route: 048
  9. COREG [Concomitant]
     Dosage: 12.5 MG, 2/D
     Route: 048
  10. DIGOXIN [Concomitant]
     Dosage: 0.25 MG, 2/D
     Route: 048
  11. SOTALOL HYDROCHLORIDE [Concomitant]
     Dosage: UNK, 2/D

REACTIONS (3)
  - CARDIAC FAILURE [None]
  - DIZZINESS [None]
  - RENAL FAILURE [None]
